FAERS Safety Report 8047066-8 (Version None)
Quarter: 2012Q1

REPORT INFORMATION
  Report Type: 
  Country: None (occurrence: None)
  Receive Date: 20120116
  Receipt Date: 20120109
  Transmission Date: 20120608
  Serious: Yes (Other)
  Sender: FDA-Public Use
  Company Number: US-BAYER-2011-122509

PATIENT
  Age: 42 Year
  Sex: Female

DRUGS (1)
  1. MIRENA [Suspect]
     Indication: CONTRACEPTION
     Dosage: 20 MCG/DAY
     Route: 015
     Dates: start: 20110324

REACTIONS (4)
  - DYSMENORRHOEA [None]
  - DEVICE DISLOCATION [None]
  - MENORRHAGIA [None]
  - MENSTRUATION IRREGULAR [None]
